FAERS Safety Report 8834595 (Version 1)
Quarter: 2012Q4

REPORT INFORMATION
  Report Type: 
  Country: JP (occurrence: JP)
  Receive Date: 20121010
  Receipt Date: 20121010
  Transmission Date: 20130627
  Serious: Yes (Other)
  Sender: FDA-Public Use
  Company Number: JP-EISAI INC-E2020-11475-SPO-JP

PATIENT

DRUGS (3)
  1. ARICEPT [Suspect]
     Indication: DRUG USE FOR UNKNOWN INDICATION
     Dosage: Unknown
     Route: 048
  2. DOGMATYL [Concomitant]
  3. ZYPREXA [Concomitant]

REACTIONS (2)
  - Coma [Unknown]
  - Social avoidant behaviour [Unknown]
